FAERS Safety Report 18760005 (Version 1)
Quarter: 2021Q1

REPORT INFORMATION
  Report Type: Spontaneous
  Country: IT (occurrence: IT)
  Receive Date: 20210119
  Receipt Date: 20210119
  Transmission Date: 20210419
  Serious: Yes (Hospitalization, Other)
  Sender: FDA-Public Use
  Company Number: IT-ALLERGAN-2103171US

PATIENT
  Sex: Female

DRUGS (1)
  1. NEBIVOLOL HCL UNK [Suspect]
     Active Substance: NEBIVOLOL
     Indication: HYPERTENSION
     Dosage: 5 MG, QD

REACTIONS (1)
  - Rhabdomyolysis [Recovered/Resolved]
